FAERS Safety Report 10995524 (Version 1)
Quarter: 2015Q2

REPORT INFORMATION
  Report Type: Spontaneous
  Country: US (occurrence: US)
  Receive Date: 20150407
  Receipt Date: 20150407
  Transmission Date: 20150821
  Serious: No
  Sender: FDA-Public Use
  Company Number: US-009507513-1503USA014488

PATIENT
  Sex: Female

DRUGS (3)
  1. TINACTIN [Suspect]
     Active Substance: TOLNAFTATE
     Indication: ONYCHOMYCOSIS
     Dosage: UNK, UNKNOWN
     Route: 061
  2. TINACTIN [Suspect]
     Active Substance: TOLNAFTATE
     Indication: YELLOW NAIL SYNDROME
  3. TINACTIN [Suspect]
     Active Substance: TOLNAFTATE
     Indication: PAIN IN EXTREMITY

REACTIONS (3)
  - Therapeutic response unexpected [Unknown]
  - Off label use [Unknown]
  - Expired product administered [Unknown]
